FAERS Safety Report 8115002-1 (Version None)
Quarter: 2012Q1

REPORT INFORMATION
  Report Type: 
  Country: None (occurrence: None)
  Receive Date: 20120206
  Receipt Date: 20120127
  Transmission Date: 20120608
  Serious: Yes (Hospitalization, Other)
  Sender: FDA-Public Use
  Company Number: AU-BRISTOL-MYERS SQUIBB COMPANY-15236185

PATIENT
  Age: 63 Year
  Sex: Female
  Weight: 61 kg

DRUGS (19)
  1. METRYL [Concomitant]
     Dosage: 1DF=0.25 UNITS NOT SPECIFIED 1 TABLET TWICE A DAY
  2. MAXOLON [Concomitant]
     Dosage: 1 UP TO 4 TIMES A DAY
  3. FELDENE [Concomitant]
  4. NITRAZEPAM [Concomitant]
  5. RISPERIDONE [Concomitant]
  6. NEXIUM [Concomitant]
  7. ACTONEL WITH CALCIUM (COPACKAGED) [Concomitant]
  8. FOLIC ACID [Concomitant]
  9. SIMVASTATIN [Concomitant]
     Dosage: 1 TABLET PER NIGHT
  10. ORENCIA [Suspect]
     Indication: RHEUMATOID ARTHRITIS
     Dosage: LAST INFUSION:17JUL10,19OCT11 30NOV2010, AGAIN 6JUL2011
     Route: 042
     Dates: start: 20090930
  11. METHOTREXATE [Suspect]
  12. CALCIUM [Concomitant]
     Dosage: 1DF=12550 UNITS NOT SPECIFIED
  13. ASPIRIN [Concomitant]
  14. OXYCODONE HCL [Concomitant]
     Dosage: 1 TABLET TWICE A DAY
  15. THIAMINE HCL [Concomitant]
  16. PAXAM [Concomitant]
  17. MS CONTIN [Concomitant]
     Dosage: 30MG IN THE MORNING
  18. EDRONAX [Concomitant]
  19. CYMBALTA [Concomitant]

REACTIONS (4)
  - URINARY TRACT INFECTION [None]
  - PANCREATITIS [None]
  - CEREBROVASCULAR ACCIDENT [None]
  - INFECTION [None]
